FAERS Safety Report 5644236-0 (Version None)
Quarter: 2008Q1

REPORT INFORMATION
  Report Type: 
  Country: None (occurrence: None)
  Receive Date: 20080227
  Receipt Date: 20080227
  Transmission Date: 20080703
  Serious: Yes (Death)
  Sender: FDA-Public Use
  Company Number: None

PATIENT
  Age: 17 Year
  Sex: Female

DRUGS (2)
  1. YASMIN [Suspect]
     Indication: CONTRACEPTION
  2. GARDASIL VACCINE [Concomitant]

REACTIONS (5)
  - BRUXISM [None]
  - CONVULSION [None]
  - FAECAL INCONTINENCE [None]
  - HEAD INJURY [None]
  - HEADACHE [None]
